FAERS Safety Report 18639884 (Version 1)
Quarter: 2020Q4

REPORT INFORMATION
  Report Type: Spontaneous
  Country: US (occurrence: US)
  Receive Date: 20201220
  Receipt Date: 20201220
  Transmission Date: 20210114
  Serious: No
  Sender: FDA-Public Use
  Company Number: US-PACIRA-201900410

PATIENT
  Age: 26 Year
  Sex: Female

DRUGS (1)
  1. EXPAREL [Suspect]
     Active Substance: BUPIVACAINE
     Indication: ANALGESIC THERAPY
     Dosage: 3 ML
     Route: 065
     Dates: start: 20191123, end: 20191123

REACTIONS (2)
  - Therapeutic product effect decreased [Not Recovered/Not Resolved]
  - Off label use [Unknown]
